FAERS Safety Report 24565007 (Version 1)
Quarter: 2024Q4

REPORT INFORMATION
  Report Type: Spontaneous
  Country: FR (occurrence: FR)
  Receive Date: 20241030
  Receipt Date: 20241030
  Transmission Date: 20250114
  Serious: Yes (Other)
  Sender: B BRAUN
  Company Number: FR-B.Braun Medical Inc.-2164119

PATIENT
  Age: 53 Year
  Sex: Male
  Weight: 60 kg

DRUGS (6)
  1. ACETAMINOPHEN [Suspect]
     Active Substance: ACETAMINOPHEN
  2. CANNABIS SATIVA SUBSP. INDICA TOP [Suspect]
     Active Substance: CANNABIS SATIVA SUBSP. INDICA TOP
  3. METHADONE [Suspect]
     Active Substance: METHADONE HYDROCHLORIDE
  4. BROMAZEPAM [Suspect]
     Active Substance: BROMAZEPAM
  5. HEROIN [Suspect]
     Active Substance: DIAMORPHINE
  6. COCAINE [Suspect]
     Active Substance: COCAINE

REACTIONS (4)
  - Substance use disorder [Unknown]
  - Tachycardia [Unknown]
  - Hypertension [Unknown]
  - Toxicity to various agents [Unknown]
